FAERS Safety Report 22101888 (Version 1)
Quarter: 2023Q1

REPORT INFORMATION
  Report Type: Spontaneous
  Country: GB (occurrence: GB)
  Receive Date: 20230316
  Receipt Date: 20230316
  Transmission Date: 20230417
  Serious: Yes (Other)
  Sender: FDA-Public Use
  Company Number: None

PATIENT
  Sex: Male

DRUGS (1)
  1. SIMVASTATIN [Suspect]
     Active Substance: SIMVASTATIN
     Indication: Cholesteatoma
     Dosage: 40MG NOCTE ; ;

REACTIONS (2)
  - Rhabdomyolysis [Not Recovered/Not Resolved]
  - Pain in extremity [Not Recovered/Not Resolved]
